FAERS Safety Report 7795431-6 (Version None)
Quarter: 2011Q4

REPORT INFORMATION
  Report Type: 
  Country: None (occurrence: None)
  Receive Date: 20111004
  Receipt Date: 20110927
  Transmission Date: 20120403
  Serious: Yes (Hospitalization)
  Sender: FDA-Public Use
  Company Number: US-B.I. PHARMACEUTICALS,INC./RIDGEFIELD-2011-BP-21888BP

PATIENT
  Sex: Female

DRUGS (4)
  1. PRADAXA [Suspect]
     Indication: ATRIAL FIBRILLATION
     Route: 048
     Dates: end: 20110801
  2. METOPROLOL TARTRATE [Concomitant]
     Indication: HYPERTENSION
  3. PAXIL [Concomitant]
     Indication: DEPRESSION
  4. PRADAXA [Suspect]
     Route: 048
     Dates: start: 20110908

REACTIONS (2)
  - DYSPEPSIA [None]
  - CEREBROVASCULAR ACCIDENT [None]
